FAERS Safety Report 10156610 (Version 1)
Quarter: 2014Q2

REPORT INFORMATION
  Report Type: Spontaneous
  Country: IT (occurrence: IT)
  Receive Date: 20140507
  Receipt Date: 20140507
  Transmission Date: 20141212
  Serious: Yes (Other)
  Sender: FDA-Public Use
  Company Number: IT-JNJFOC-20140417814

PATIENT
  Age: 67 Year
  Sex: Male

DRUGS (10)
  1. IMODIUM [Suspect]
     Indication: DIARRHOEA
     Route: 048
     Dates: start: 20140401, end: 20140402
  2. COUMADIN (WARFARIN SODIUM) [Interacting]
     Indication: CARDIOVASCULAR EVENT PROPHYLAXIS
     Route: 048
  3. COUMADIN (WARFARIN SODIUM) [Interacting]
     Indication: CARDIOVASCULAR EVENT PROPHYLAXIS
     Route: 048
     Dates: start: 20090529
  4. ENTEROGERMINA [Interacting]
     Indication: DIARRHOEA
     Route: 048
     Dates: start: 20140401, end: 20140403
  5. AMIODAR [Concomitant]
     Route: 065
  6. MODURETIC [Concomitant]
     Route: 065
  7. HYDROCHLOROTHIAZIDE [Concomitant]
     Route: 065
  8. MEPRAL [Concomitant]
     Route: 065
  9. LEXOTAN [Concomitant]
     Dosage: 15 DROPS
     Route: 048
  10. METOPROLOL TARTRATE [Concomitant]
     Dosage: 15 DROPS
     Route: 065

REACTIONS (2)
  - International normalised ratio increased [Recovered/Resolved]
  - Drug interaction [Recovered/Resolved]
